FAERS Safety Report 4446517-5 (Version None)
Quarter: 2004Q3

REPORT INFORMATION
  Report Type: 
  Country: None (occurrence: None)
  Receive Date: 20040902
  Receipt Date: 20040824
  Transmission Date: 20050211
  Serious: Yes (Death, Hospitalization)
  Sender: FDA-Public Use
  Company Number: 2004JP001501

PATIENT
  Age: 10 Year
  Sex: Female

DRUGS (5)
  1. PROGRAF [Suspect]
     Indication: LIVER TRANSPLANT
     Dates: start: 20040129
  2. RITUXAN [Suspect]
     Dosage: INTRAVENOUS
     Route: 042
  3. METHYLPREDNISOLONE [Suspect]
  4. MYCOPHENOLATE MOFETIL (MYCOPHENOLATE MOFETIL) [Suspect]
  5. SIMULECT [Suspect]
     Dosage: INTRAVENOUS
     Route: 042

REACTIONS (6)
  - CYTOMEGALOVIRUS INFECTION [None]
  - IMMUNOSUPPRESSION [None]
  - LIVER TRANSPLANT REJECTION [None]
  - MEDICATION ERROR [None]
  - PATHOGEN RESISTANCE [None]
  - PNEUMOCYSTIS CARINII PNEUMONIA [None]
